FAERS Safety Report 9029365 (Version 5)
Quarter: 2014Q1

REPORT INFORMATION
  Report Type: Spontaneous
  Country: US (occurrence: US)
  Receive Date: 20130125
  Receipt Date: 20140207
  Transmission Date: 20141002
  Serious: Yes (Other)
  Sender: FDA-Public Use
  Company Number: US-PERRIGO-13US000488

PATIENT
  Age: 29 Year
  Sex: Female
  Weight: 52.15 kg

DRUGS (3)
  1. OXYMETAZOLINE HYDROCHLORIDE 0.05% 304 [Suspect]
     Indication: NASAL CONGESTION
     Dosage: 3 SPRAYS, SINGLE
     Route: 045
     Dates: start: 201208, end: 201208
  2. PRENATAL VITAMINS [Concomitant]
     Indication: SUPPLEMENTATION THERAPY
     Dosage: UNK, UNK
     Route: 048
  3. CLARITIN-D [Concomitant]
     Indication: PRODUCT USED FOR UNKNOWN INDICATION
     Dosage: 1 TABLET, QD
     Route: 048

REACTIONS (2)
  - Anosmia [Recovering/Resolving]
  - Ageusia [Recovering/Resolving]
